FAERS Safety Report 9164323 (Version 2)
Quarter: 2013Q1

REPORT INFORMATION
  Report Type: Spontaneous
  Country: US (occurrence: US)
  Receive Date: 20130315
  Receipt Date: 20130326
  Transmission Date: 20140127
  Serious: No
  Sender: FDA-Public Use
  Company Number: US-BIOGENIDEC-2013BI023440

PATIENT
  Sex: Female

DRUGS (1)
  1. TYSABRI [Suspect]
     Indication: MULTIPLE SCLEROSIS
     Route: 042
     Dates: start: 20121001

REACTIONS (4)
  - Blood test abnormal [Recovered/Resolved]
  - Poor peripheral circulation [Not Recovered/Not Resolved]
  - Blood potassium increased [Recovered/Resolved with Sequelae]
  - Coagulopathy [Recovered/Resolved]
